FAERS Safety Report 6317410-8 (Version None)
Quarter: 2009Q3

REPORT INFORMATION
  Report Type: 
  Country: None (occurrence: None)
  Receive Date: 20090820
  Receipt Date: 20090820
  Transmission Date: 20100115
  Serious: No
  Sender: FDA-Public Use
  Company Number: None

PATIENT
  Sex: Female
  Weight: 90.7194 kg

DRUGS (4)
  1. MECLIZINE [Suspect]
     Indication: DIZZINESS
     Dosage: 25MG 1 EVERY 12 HOURS ORAL
     Route: 048
     Dates: start: 20090710
  2. MECLIZINE [Suspect]
     Indication: PROPHYLAXIS OF NAUSEA AND VOMITING
     Dosage: 25MG 1 EVERY 12 HOURS ORAL
     Route: 048
     Dates: start: 20090710
  3. MECLIZINE [Suspect]
     Indication: VOMITING
     Dosage: 25MG 1 EVERY 12 HOURS ORAL
     Route: 048
     Dates: start: 20090710
  4. PROMETHAZINE [Suspect]
     Indication: NAUSEA
     Dosage: 25MG 1 EVERY 6 HOURS ORAL
     Route: 048
     Dates: start: 20090710

REACTIONS (4)
  - DIZZINESS [None]
  - HALLUCINATION [None]
  - NAUSEA [None]
  - NIGHTMARE [None]
